FAERS Safety Report 9869923 (Version 1)
Quarter: 2014Q1

REPORT INFORMATION
  Report Type: Spontaneous
  Country: FR (occurrence: FR)
  Receive Date: 20140205
  Receipt Date: 20140205
  Transmission Date: 20141002
  Serious: Yes (Other)
  Sender: FDA-Public Use
  Company Number: FR-UCBSA-111031

PATIENT
  Age: 68 Year
  Sex: Female

DRUGS (3)
  1. VIMPAT [Suspect]
  2. KEPPRA [Suspect]
  3. CORTISONE [Concomitant]
     Dosage: LOW DOSE

REACTIONS (3)
  - Transaminases increased [Not Recovered/Not Resolved]
  - Gamma-glutamyltransferase increased [Not Recovered/Not Resolved]
  - Autoimmune hepatitis [Not Recovered/Not Resolved]
